FAERS Safety Report 5317183-1 (Version None)
Quarter: 2007Q2

REPORT INFORMATION
  Report Type: 
  Country: None (occurrence: None)
  Receive Date: 20070504
  Receipt Date: 20070424
  Transmission Date: 20071010
  Serious: Yes (Other)
  Sender: FDA-Public Use
  Company Number: US-PFIZER INC-2007015341

PATIENT
  Age: 70 Year
  Sex: Male

DRUGS (11)
  1. LYRICA [Suspect]
     Indication: NEUROPATHY
     Route: 048
     Dates: start: 20070208, end: 20070222
  2. ACETYLSALICYLIC ACID SRT [Concomitant]
     Dosage: TEXT:81
  3. ATROVENT [Concomitant]
     Route: 045
  4. AVANDIA [Concomitant]
  5. MAGNESIUM OXIDE [Concomitant]
     Dosage: DAILY DOSE:400MG
  6. COZAAR [Concomitant]
     Dosage: DAILY DOSE:100MG
  7. FISH OIL [Concomitant]
  8. FLONASE [Concomitant]
     Route: 045
  9. FOLTX [Concomitant]
  10. HYDROCHLOROTHIAZIDE [Concomitant]
     Dosage: DAILY DOSE:25MG
  11. LIPITOR [Concomitant]
     Dosage: DAILY DOSE:80MG

REACTIONS (2)
  - PENILE HAEMORRHAGE [None]
  - URINARY TRACT INFECTION [None]
